FAERS Safety Report 9475462 (Version 1)
Quarter: 2013Q3

REPORT INFORMATION
  Report Type: Report from Study
  Country: BR (occurrence: BR)
  Receive Date: 20130826
  Receipt Date: 20130826
  Transmission Date: 20140515
  Serious: Yes (Death, Hospitalization, Other)
  Sender: FDA-Public Use
  Company Number: BR-ROCHE-1266298

PATIENT
  Sex: Male
  Weight: 24.5 kg

DRUGS (3)
  1. PULMOZYME [Suspect]
     Indication: CYSTIC FIBROSIS
     Route: 065
     Dates: start: 200410, end: 20090728
  2. PANCREASE [Concomitant]
     Dosage: 3 CAPSULES IN MAIN MEALS AND 2 IN SNACKS.
     Route: 065
     Dates: start: 200407
  3. CREON [Concomitant]
     Dosage: 3 CAPSULES IN MAIN MEALS AND 2 IN SNACKS.
     Route: 065
     Dates: start: 200407

REACTIONS (4)
  - Disease progression [Fatal]
  - Meningitis [Unknown]
  - Immunodeficiency [Unknown]
  - Headache [Unknown]
